FAERS Safety Report 14228344 (Version 1)
Quarter: 2017Q4

REPORT INFORMATION
  Report Type: Report from Study
  Country: US (occurrence: US)
  Receive Date: 20171127
  Receipt Date: 20171127
  Transmission Date: 20180321
  Serious: Yes (Other)
  Sender: FDA-Public Use
  Company Number: US-JNJFOC-20171118473

PATIENT
  Age: 74 Year
  Sex: Female
  Weight: 79.38 kg

DRUGS (10)
  1. NORTRIPTYLINE [Suspect]
     Active Substance: NORTRIPTYLINE
     Indication: VULVOVAGINAL PAIN
     Route: 065
  2. CLONAZEPAM. [Concomitant]
     Active Substance: CLONAZEPAM
     Indication: ANXIETY
     Route: 065
     Dates: start: 2012
  3. XARELTO [Suspect]
     Active Substance: RIVAROXABAN
     Indication: PRODUCT USED FOR UNKNOWN INDICATION
     Dosage: WITH DINNER
     Route: 048
     Dates: start: 2017
  4. BOTOX [Suspect]
     Active Substance: ONABOTULINUMTOXINA
     Indication: MIGRAINE
     Route: 050
  5. METOPROLOL. [Concomitant]
     Active Substance: METOPROLOL
     Indication: HEART RATE
     Dosage: EVERY 8 HOURS, BEEN INCREASING HER DOSE
     Route: 065
     Dates: start: 2012
  6. BENADRYL [Suspect]
     Active Substance: DIPHENHYDRAMINE HYDROCHLORIDE
     Indication: PROPHYLAXIS
     Route: 048
     Dates: start: 2017
  7. METOPROLOL. [Concomitant]
     Active Substance: METOPROLOL
     Indication: HEART RATE
     Route: 065
  8. PREDNISONE. [Suspect]
     Active Substance: PREDNISONE
     Indication: CONTRAST MEDIA REACTION
     Route: 065
  9. METHIMAZOLE. [Concomitant]
     Active Substance: METHIMAZOLE
     Indication: THYROID DISORDER
     Route: 065
     Dates: start: 2012
  10. PREDNISONE. [Suspect]
     Active Substance: PREDNISONE
     Indication: PROPHYLAXIS
     Route: 065

REACTIONS (5)
  - Neoplasm malignant [Unknown]
  - Atrial fibrillation [Recovered/Resolved]
  - Weight increased [Unknown]
  - Nephrolithiasis [Recovered/Resolved]
  - Vulvovaginal pain [Unknown]

NARRATIVE: CASE EVENT DATE: 201711
